FAERS Safety Report 16388391 (Version 1)
Quarter: 2019Q2

REPORT INFORMATION
  Report Type: Spontaneous
  Country: US (occurrence: US)
  Receive Date: 20190604
  Receipt Date: 20190604
  Transmission Date: 20190711
  Serious: No
  Sender: FDA-Public Use
  Company Number: US-BAYER-2019-107864

PATIENT
  Age: 67 Year
  Sex: Female
  Weight: 118 kg

DRUGS (3)
  1. MIRALAX [Suspect]
     Active Substance: POLYETHYLENE GLYCOL 3350
     Indication: GASTROINTESTINAL DISORDER
     Dosage: 17 G
     Route: 048
  2. DIABETES [Concomitant]
  3. MENTAL CALMNESS [Concomitant]

REACTIONS (1)
  - Drug ineffective [Unknown]
